FAERS Safety Report 13620028 (Version 2)
Quarter: 2017Q3

REPORT INFORMATION
  Report Type: Report from Study
  Country: None (occurrence: US)
  Receive Date: 20170607
  Receipt Date: 20170804
  Transmission Date: 20171127
  Serious: Yes (Hospitalization, Other)
  Sender: FDA-Public Use
  Company Number: US-ABBVIE-17K-163-1958796-00

PATIENT
  Age: 53 Year
  Sex: Female

DRUGS (1)
  1. HUMIRA [Suspect]
     Active Substance: ADALIMUMAB
     Indication: EXPOSURE VIA BODY FLUID
     Route: 050

REACTIONS (8)
  - Twin pregnancy [Unknown]
  - Uterine cyst [Recovered/Resolved]
  - Exposure during pregnancy [Unknown]
  - Cyst rupture [Recovered/Resolved]
  - Paternal drugs affecting foetus [Unknown]
  - Premature delivery [Not Recovered/Not Resolved]
  - Live birth [Unknown]
  - Preterm premature rupture of membranes [Recovered/Resolved]

NARRATIVE: CASE EVENT DATE: 20160407
